FAERS Safety Report 8780700 (Version 4)
Quarter: 2012Q4

REPORT INFORMATION
  Report Type: 
  Country: GB (occurrence: GB)
  Receive Date: 20120913
  Receipt Date: 20121026
  Transmission Date: 20130627
  Serious: Yes (Life-Threatening, Hospitalization, Other)
  Sender: FDA-Public Use
  Company Number: GB-BAYER-2012-093419

PATIENT
  Age: 2 Month
  Sex: Female

DRUGS (4)
  1. NIFEDIPINE [Suspect]
     Dosage: UNK
     Route: 064
  2. NIFEDIPINE [Suspect]
     Dosage: UNK
     Route: 064
  3. FOLIC ACID [Concomitant]
     Route: 064
  4. FOLIC ACID [Concomitant]
     Route: 064

REACTIONS (7)
  - Neonatal respiratory distress syndrome [None]
  - Foetal growth restriction [None]
  - Foetal exposure during pregnancy [None]
  - Hyperglycaemia [None]
  - Amniotic fluid volume decreased [None]
  - Bradycardia [None]
  - Apnoea [None]
